FAERS Safety Report 12439077 (Version 3)
Quarter: 2016Q3

REPORT INFORMATION
  Report Type: Spontaneous
  Country: GB (occurrence: GB)
  Receive Date: 20160606
  Receipt Date: 20160725
  Transmission Date: 20161109
  Serious: Yes (Other)
  Sender: FDA-Public Use
  Company Number: GB-TEVA-664328ACC

PATIENT
  Age: 71 Year
  Sex: Male

DRUGS (1)
  1. METHOTREXATE SODIUM. [Suspect]
     Active Substance: METHOTREXATE SODIUM
     Dosage: UNK

REACTIONS (1)
  - Pneumoconiosis [Unknown]
